FAERS Safety Report 6725320-7 (Version None)
Quarter: 2010Q2

REPORT INFORMATION
  Report Type: 
  Country: None (occurrence: None)
  Receive Date: 20100514
  Receipt Date: 20100512
  Transmission Date: 20101027
  Serious: Yes (Hospitalization)
  Sender: FDA-Public Use
  Company Number: KR-BRISTOL-MYERS SQUIBB COMPANY-15083199

PATIENT
  Age: 39 Year
  Sex: Male
  Weight: 71 kg

DRUGS (2)
  1. CISPLATIN [Suspect]
     Indication: GASTROOESOPHAGEAL CANCER
     Dosage: DAY 1 OF CYCLE
     Route: 042
     Dates: start: 20100415
  2. XELODA [Suspect]
     Indication: GASTROOESOPHAGEAL CANCER
     Dosage: DAY 1-15;TABS
     Route: 048
     Dates: start: 20100415

REACTIONS (1)
  - DIZZINESS [None]
